FAERS Safety Report 10395084 (Version 1)
Quarter: 2014Q1

REPORT INFORMATION
  Report Type: Spontaneous
  Country: US (occurrence: None)
  Receive Date: 20130524
  Receipt Date: 20130524
  Transmission Date: 20141002
  Serious: Yes (Hospitalization, Other)
  Sender: FDA-Public Use
  Company Number: PHEH2012US023533

PATIENT
  Age: 48 Year
  Sex: Female
  Weight: 89.81 kg

DRUGS (1)
  1. GILENYA (FINGOLIMOD) CAPSULE, 0.5MG [Suspect]
     Indication: MULTIPLE SCLEROSIS
     Route: 048
     Dates: start: 20121101

REACTIONS (12)
  - Multiple sclerosis relapse [None]
  - Middle ear effusion [None]
  - Motion sickness [None]
  - Visual impairment [None]
  - Gait disturbance [None]
  - Fatigue [None]
  - Sensation of heaviness [None]
  - Balance disorder [None]
  - Vertigo [None]
  - Dizziness [None]
  - Tinnitus [None]
  - Nausea [None]
